FAERS Safety Report 8226729-5 (Version None)
Quarter: 2012Q1

REPORT INFORMATION
  Report Type: 
  Country: None (occurrence: None)
  Receive Date: 20120322
  Receipt Date: 20120313
  Transmission Date: 20120608
  Serious: Yes (Hospitalization)
  Sender: FDA-Public Use
  Company Number: US-BAYER-2011-034794

PATIENT
  Age: 19 Year
  Sex: Female
  Weight: 68.027 kg

DRUGS (8)
  1. IBUPROFEN (ADVIL) [Concomitant]
  2. YAZ [Suspect]
     Indication: CONTRACEPTION
     Dosage: UNK
     Dates: start: 20090301, end: 20090901
  3. YAZ [Suspect]
     Indication: MIGRAINE
  4. YAZ [Suspect]
     Indication: ACNE
  5. NAPROXEN SODIUM [Concomitant]
     Dosage: 550 MG, UNK
  6. GARDASIL [Concomitant]
  7. PREDNISONE TAB [Concomitant]
     Dosage: 10 MG, UNK
  8. POTASSIUM [Concomitant]
     Dosage: UNK
     Dates: start: 20090901

REACTIONS (7)
  - DEEP VEIN THROMBOSIS [None]
  - DEFORMITY [None]
  - SWELLING [None]
  - VENOUS INSUFFICIENCY [None]
  - INJURY [None]
  - ANXIETY [None]
  - PAIN [None]
